FAERS Safety Report 7823032-X (Version None)
Quarter: 2011Q4

REPORT INFORMATION
  Report Type: 
  Country: None (occurrence: None)
  Receive Date: 20111018
  Receipt Date: 20100910
  Transmission Date: 20120403
  Serious: No
  Sender: FDA-Public Use
  Company Number: US-ASTRAZENECA-2010SE42556

PATIENT
  Age: 83 Year
  Sex: Female
  Weight: 54.4 kg

DRUGS (7)
  1. LIPITOR [Concomitant]
  2. ASPIRIN [Concomitant]
  3. PROZAC [Concomitant]
  4. CLARITIN [Concomitant]
  5. HYDROCHLOROTHIAZIDE [Concomitant]
  6. SYMBICORT [Suspect]
     Dosage: 80/4.5 MCG BID
     Route: 055
  7. SYMBICORT [Suspect]
     Dosage: 160/4.5 MCG BID
     Route: 055

REACTIONS (2)
  - LARYNGITIS [None]
  - COUGH [None]
